FAERS Safety Report 11067082 (Version 2)
Quarter: 2015Q2

REPORT INFORMATION
  Report Type: Spontaneous
  Country: US (occurrence: US)
  Receive Date: 20150425
  Receipt Date: 20150525
  Transmission Date: 20150821
  Serious: No
  Sender: FDA-Public Use
  Company Number: US-JNJFOC-20130708253

PATIENT
  Age: 42 Year
  Sex: Female
  Weight: 57.61 kg

DRUGS (5)
  1. FOLIC ACID. [Concomitant]
     Active Substance: FOLIC ACID
     Route: 048
     Dates: start: 201302
  2. METHOTREXATE [Concomitant]
     Active Substance: METHOTREXATE
     Indication: RHEUMATOID ARTHRITIS
     Route: 048
     Dates: start: 201302
  3. SIMPONI [Suspect]
     Active Substance: GOLIMUMAB
     Indication: RHEUMATOID ARTHRITIS
     Route: 058
     Dates: start: 201302
  4. VITAMIN C [Concomitant]
     Active Substance: ASCORBIC ACID
     Indication: ROUTINE HEALTH MAINTENANCE
     Route: 048
     Dates: start: 201302
  5. VITAMIN D3 [Concomitant]
     Active Substance: CHOLECALCIFEROL
     Indication: ANAEMIA
     Route: 048
     Dates: start: 201302

REACTIONS (3)
  - Drug dose omission [Not Recovered/Not Resolved]
  - Device malfunction [Unknown]
  - Pain [Not Recovered/Not Resolved]

NARRATIVE: CASE EVENT DATE: 201302
